FAERS Safety Report 5693824-4 (Version None)
Quarter: 2008Q2

REPORT INFORMATION
  Report Type: 
  Country: None (occurrence: None)
  Receive Date: 20080403
  Receipt Date: 20080325
  Transmission Date: 20081010
  Serious: Yes (Other)
  Sender: FDA-Public Use
  Company Number: AU-JNJFOC-20080202445

PATIENT
  Sex: Male

DRUGS (1)
  1. RISPERDAL [Suspect]
     Indication: DRUG USE FOR UNKNOWN INDICATION
     Dosage: DURATION OF THERAPY WAS EIGHT TO NINE MONTHS
     Route: 030

REACTIONS (3)
  - INFERTILITY [None]
  - SPERM COUNT DECREASED [None]
  - SUICIDAL IDEATION [None]
